FAERS Safety Report 5734129-2 (Version None)
Quarter: 2008Q2

REPORT INFORMATION
  Report Type: 
  Country: None (occurrence: None)
  Receive Date: 20080509
  Receipt Date: 20080502
  Transmission Date: 20081010
  Serious: Yes (Other)
  Sender: FDA-Public Use
  Company Number: DE-PFIZER INC-2008039380

PATIENT
  Sex: Male

DRUGS (3)
  1. TOLTERODINE TARTRATE [Suspect]
     Route: 048
  2. TAMSULOSIN HCL [Concomitant]
     Route: 048
  3. HCT ^CT-ARZNEIMITTEL^ [Concomitant]
     Route: 048

REACTIONS (2)
  - FLUID RETENTION [None]
  - WEIGHT INCREASED [None]
